FAERS Safety Report 15005947 (Version 1)
Quarter: 2018Q2

REPORT INFORMATION
  Report Type: Spontaneous
  Country: IT (occurrence: IT)
  Receive Date: 20180613
  Receipt Date: 20180613
  Transmission Date: 20180711
  Serious: Yes (Other)
  Sender: FDA-Public Use
  Company Number: IT-JNJFOC-20180611019

PATIENT
  Age: 77 Year
  Sex: Female

DRUGS (3)
  1. CONTRAMAL [Suspect]
     Active Substance: TRAMADOL HYDROCHLORIDE
     Indication: SPINAL PAIN
     Route: 048
     Dates: start: 20180221, end: 20180221
  2. VOLTAREN [Interacting]
     Active Substance: DICLOFENAC SODIUM
     Indication: SPINAL PAIN
     Route: 030
     Dates: start: 20180221, end: 20180221
  3. DEPO-MEDROL [Interacting]
     Active Substance: METHYLPREDNISOLONE ACETATE
     Indication: SPINAL PAIN
     Route: 030
     Dates: start: 20180221, end: 20180221

REACTIONS (2)
  - Drug interaction [Recovering/Resolving]
  - Vomiting [Recovering/Resolving]

NARRATIVE: CASE EVENT DATE: 20180222
